FAERS Safety Report 9462975 (Version 2)
Quarter: 2013Q3

REPORT INFORMATION
  Report Type: Spontaneous
  Country: US (occurrence: US)
  Receive Date: 20130816
  Receipt Date: 20130816
  Transmission Date: 20140515
  Serious: Yes (Death)
  Sender: FDA-Public Use
  Company Number: US-009507513-0309USA02850

PATIENT
  Age: 33 Year
  Sex: Female
  Weight: 74.39 kg

DRUGS (11)
  1. CRIXIVAN [Suspect]
     Indication: HIV INFECTION
     Route: 048
     Dates: start: 20001205, end: 20010726
  2. DIDANOSINE [Suspect]
     Indication: HIV INFECTION
     Dosage: UNK
     Dates: start: 20001205, end: 20020422
  3. KALETRA [Suspect]
     Indication: HIV INFECTION
     Dosage: UNK
     Dates: start: 20001205, end: 20020422
  4. RITONAVIR [Suspect]
     Indication: HIV INFECTION
     Dates: start: 20001205, end: 20010726
  5. STAVUDINE [Suspect]
     Indication: HIV INFECTION
     Dates: start: 20001205, end: 20020422
  6. BIAXIN [Concomitant]
  7. AMOXICILLIN [Concomitant]
  8. PREVACID [Concomitant]
  9. PROTONIX [Concomitant]
  10. SEROQUEL [Concomitant]
  11. BACTRIM DS [Concomitant]

REACTIONS (8)
  - Acquired immunodeficiency syndrome [Fatal]
  - Abdominal pain [Fatal]
  - Depression [Fatal]
  - Gastritis [Fatal]
  - Pyrexia [Fatal]
  - Sinus tachycardia [Fatal]
  - Viral infection [Fatal]
  - Chest X-ray abnormal [Fatal]
